FAERS Safety Report 16594571 (Version 1)
Quarter: 2019Q3

REPORT INFORMATION
  Report Type: Spontaneous
  Country: US (occurrence: US)
  Receive Date: 20190718
  Receipt Date: 20190718
  Transmission Date: 20191004
  Serious: No
  Sender: FDA-Public Use
  Company Number: US-MYLANLABS-2019M1064222

PATIENT
  Sex: Male

DRUGS (1)
  1. ACYCLOVIR OINTMENT USP, 5% [Suspect]
     Active Substance: ACYCLOVIR
     Indication: SKIN LESION
     Dosage: UNK
     Route: 061

REACTIONS (2)
  - Application site pain [Not Recovered/Not Resolved]
  - Product container issue [Unknown]
